FAERS Safety Report 21966663 (Version 1)
Quarter: 2023Q1

REPORT INFORMATION
  Report Type: Spontaneous
  Country: US (occurrence: US)
  Receive Date: 20230208
  Receipt Date: 20230208
  Transmission Date: 20230417
  Serious: Yes (Other)
  Sender: FDA-Public Use
  Company Number: US-SA-SAC20230207001019

PATIENT
  Age: 46 Year
  Sex: Male
  Weight: 74 kg

DRUGS (15)
  1. DUPIXENT [Suspect]
     Active Substance: DUPILUMAB
     Indication: Illness
     Dosage: 600 MG 1X
     Route: 058
  2. BETAMETHASONE DIPROPIONATE\CLOTRIMAZOLE [Concomitant]
     Active Substance: BETAMETHASONE DIPROPIONATE\CLOTRIMAZOLE
  3. METHYLPHENIDATE [Concomitant]
     Active Substance: METHYLPHENIDATE
  4. GABAPENTIN [Concomitant]
     Active Substance: GABAPENTIN
  5. XTAMPZA ER [Concomitant]
     Active Substance: OXYCODONE
  6. SUMATRIPTAN [Concomitant]
     Active Substance: SUMATRIPTAN
  7. ESOMEPRAZOLE MAGNESIUM [Concomitant]
     Active Substance: ESOMEPRAZOLE MAGNESIUM
  8. LEVOTHYROXINE [Concomitant]
     Active Substance: LEVOTHYROXINE
  9. CREON [Concomitant]
     Active Substance: PANCRELIPASE AMYLASE\PANCRELIPASE LIPASE\PANCRELIPASE PROTEASE
  10. AJOVIT [Concomitant]
  11. OXYCODONE [Concomitant]
     Active Substance: OXYCODONE
  12. TRAMADOL [Concomitant]
     Active Substance: TRAMADOL
  13. TRIAMCINOLONE [Concomitant]
     Active Substance: TRIAMCINOLONE
  14. CLOBETASOL PROPIONATE [Concomitant]
     Active Substance: CLOBETASOL PROPIONATE
  15. FLUTICASONE [Concomitant]
     Active Substance: FLUTICASONE

REACTIONS (9)
  - Cellulitis [Unknown]
  - Haemorrhage [Unknown]
  - Skin weeping [Recovered/Resolved]
  - Condition aggravated [Unknown]
  - Skin fissures [Unknown]
  - Dry skin [Unknown]
  - Pruritus [Unknown]
  - Skin exfoliation [Unknown]
  - Rash [Unknown]

NARRATIVE: CASE EVENT DATE: 20230101
